FAERS Safety Report 21422503 (Version 2)
Quarter: 2022Q4

REPORT INFORMATION
  Report Type: Spontaneous
  Country: US (occurrence: US)
  Receive Date: 20221007
  Receipt Date: 20221104
  Transmission Date: 20230112
  Serious: No
  Sender: FDA-Public Use
  Company Number: US-PFIZER INC-PV202200059690

PATIENT
  Age: 60 Year
  Sex: Female

DRUGS (4)
  1. IBRANCE [Suspect]
     Active Substance: PALBOCICLIB
     Indication: Breast cancer female
     Dosage: 125 MG, CYCLIC (DAILY ON DAYS 1-21 FOLLOWED BY 7 DAYS OFF. REPEAT EVERY 28 DAYS.)
     Route: 048
     Dates: start: 20220128
  2. ASPIRIN [Concomitant]
     Active Substance: ASPIRIN
     Dosage: 81 MG
  3. FASLODEX [Concomitant]
     Active Substance: FULVESTRANT
     Dosage: 250 MG
  4. MINOXIDIL [Concomitant]
     Active Substance: MINOXIDIL
     Dosage: 10 MG

REACTIONS (2)
  - Alopecia [Unknown]
  - Product dose omission in error [Unknown]
